FAERS Safety Report 11875519 (Version 1)
Quarter: 2015Q4

REPORT INFORMATION
  Report Type: Spontaneous
  Country: US (occurrence: US)
  Receive Date: 20151229
  Receipt Date: 20151229
  Transmission Date: 20160305
  Serious: Yes (Other)
  Sender: FDA-Public Use
  Company Number: PHHY2015US166801

PATIENT
  Age: 24 Year
  Sex: Female

DRUGS (1)
  1. PARACETAMOL [Suspect]
     Active Substance: ACETAMINOPHEN
     Indication: PRODUCT USED FOR UNKNOWN INDICATION
     Route: 055

REACTIONS (11)
  - Epiglottis ulcer [Unknown]
  - Rhinalgia [Unknown]
  - Pharyngitis [Unknown]
  - Odynophagia [Unknown]
  - Fungal infection [Unknown]
  - Nasal septum perforation [Unknown]
  - Palatal disorder [Unknown]
  - Drug administration error [Unknown]
  - Dysphonia [Unknown]
  - Oral mucosa erosion [Unknown]
  - Drug abuse [Unknown]
